FAERS Safety Report 13765776 (Version 1)
Quarter: 2017Q3

REPORT INFORMATION
  Report Type: Spontaneous
  Country: US (occurrence: US)
  Receive Date: 20170718
  Receipt Date: 20170718
  Transmission Date: 20171127
  Serious: Yes (Hospitalization)
  Sender: FDA-Public Use
  Company Number: None

PATIENT
  Age: 58 Year
  Sex: Male

DRUGS (3)
  1. TARCEVA [Suspect]
     Active Substance: ERLOTINIB HYDROCHLORIDE
     Indication: RENAL CANCER
     Dosage: ON HOLD
     Route: 048
     Dates: start: 20161018
  2. PITOCIN [Concomitant]
     Active Substance: OXYTOCIN
  3. VITA- PLUS E [Concomitant]

REACTIONS (1)
  - Therapy cessation [None]
